FAERS Safety Report 6206705-4 (Version None)
Quarter: 2009Q2

REPORT INFORMATION
  Report Type: 
  Country: None (occurrence: None)
  Receive Date: 20090528
  Receipt Date: 20090520
  Transmission Date: 20091009
  Serious: Yes (Hospitalization, Other)
  Sender: FDA-Public Use
  Company Number: US-ELI_LILLY_AND_COMPANY-US200904004959

PATIENT
  Sex: Female
  Weight: 55.782 kg

DRUGS (7)
  1. FORTEO [Suspect]
     Indication: OSTEOPOROSIS
     Dosage: 20 UG, DAILY (1/D)
     Dates: start: 20090308, end: 20090401
  2. FORTEO [Suspect]
     Dosage: 20 UG, DAILY (1/D)
     Dates: start: 20090101
  3. LISINOPRIL [Concomitant]
     Dosage: 20 MG, DAILY (1/D)
     Route: 048
  4. MEGACE [Concomitant]
     Dosage: 80 MG, 2/D
     Route: 048
  5. POTASSIUM CHLORIDE [Concomitant]
     Dosage: 20 MEQ, DAILY (1/D)
     Route: 048
  6. CHLORTHALIDONE [Concomitant]
     Dosage: 25 MG, DAILY (1/D)
     Route: 048
  7. CELEBREX [Concomitant]
     Dosage: 200 MG, DAILY (1/D)
     Route: 048

REACTIONS (1)
  - PELVIC FRACTURE [None]
